FAERS Safety Report 7898893-9 (Version None)
Quarter: 2011Q4

REPORT INFORMATION
  Report Type: 
  Country: None (occurrence: None)
  Receive Date: 20111107
  Receipt Date: 20111028
  Transmission Date: 20120403
  Serious: Yes (Other)
  Sender: FDA-Public Use
  Company Number: US-ASTRAZENECA-2011SE41337

PATIENT
  Age: 44 Year
  Sex: Female
  Weight: 62.6 kg

DRUGS (19)
  1. SEROQUEL [Suspect]
     Route: 048
     Dates: start: 20091209
  2. SEROQUEL [Suspect]
     Indication: SCHIZOPHRENIA
     Route: 048
  3. SEROQUEL [Suspect]
     Route: 048
     Dates: start: 20091209
  4. LITHIUM CITRATE [Concomitant]
     Indication: DEPRESSION
  5. SEROQUEL [Suspect]
     Route: 048
     Dates: start: 20091209
  6. GABAPENTIN [Concomitant]
     Indication: DEPRESSION
     Dosage: 4 TIMES A DAY
  7. SEROQUEL [Suspect]
     Indication: MAJOR DEPRESSION
     Route: 048
  8. SEROQUEL [Suspect]
     Indication: PANIC DISORDER
     Route: 048
  9. CLONIDINE [Concomitant]
     Indication: BLOOD PRESSURE ABNORMAL
  10. LITHIUM CITRATE [Concomitant]
     Indication: PANIC DISORDER
  11. AMLODIPINE [Concomitant]
     Indication: BLOOD PRESSURE ABNORMAL
  12. ETODOLAC [Concomitant]
     Dosage: PRN
  13. SEROQUEL [Suspect]
     Route: 048
     Dates: start: 20091209
  14. CLONIDINE [Concomitant]
     Indication: HOT FLUSH
  15. LISINOPRIL AND HYDROCHLOROTHIAZIDE [Suspect]
     Indication: BLOOD PRESSURE ABNORMAL
     Dosage: 10/ 12.5
     Route: 048
  16. GABAPENTIN [Concomitant]
     Indication: PANIC DISORDER
     Dosage: 4 TIMES A DAY
  17. EFFEXOR XR [Concomitant]
     Indication: PANIC DISORDER
     Dosage: 2 TABLETS ONCE A DAY
  18. SEROQUEL [Suspect]
     Indication: BIPOLAR DISORDER
     Route: 048
  19. EFFEXOR XR [Concomitant]
     Indication: DEPRESSION
     Dosage: 2 TABLETS ONCE A DAY

REACTIONS (8)
  - LOSS OF CONSCIOUSNESS [None]
  - ISCHAEMIC STROKE [None]
  - IIIRD NERVE PARALYSIS [None]
  - OFF LABEL USE [None]
  - HYPERTENSION [None]
  - LID LAG [None]
  - CONVULSION [None]
  - HYPERLIPIDAEMIA [None]
